FAERS Safety Report 5867371-0 (Version None)
Quarter: 2008Q3

REPORT INFORMATION
  Report Type: 
  Country: None (occurrence: None)
  Receive Date: 20080902
  Receipt Date: 20080825
  Transmission Date: 20090109
  Serious: Yes (Other)
  Sender: FDA-Public Use
  Company Number: PHHY2008FR14744

PATIENT
  Sex: Female
  Weight: 70 kg

DRUGS (8)
  1. EXJADE [Suspect]
     Indication: HAEMOCHROMATOSIS
     Dosage: 2 - 3 TABLETS/DAY
     Dates: start: 20060601, end: 20080605
  2. DEFEROXAMINE MESILATE [Suspect]
  3. MICARDIS HCT [Concomitant]
     Indication: HYPERTENSION
     Dosage: 1 DF, QD
     Route: 048
     Dates: start: 20070601
  4. MICARDIS HCT [Concomitant]
     Indication: NEPHROPATHY TOXIC
  5. ARANESP [Concomitant]
     Dosage: 150 UG/WEEK
     Route: 058
     Dates: start: 20070601
  6. ACETAMINOPHEN [Concomitant]
     Indication: PAIN
  7. FOLIC ACID [Concomitant]
  8. BI-PROFENID [Concomitant]
     Dosage: FROM TIME TO TIME

REACTIONS (6)
  - BLOOD CREATININE INCREASED [None]
  - BLOOD UREA INCREASED [None]
  - CREATININE RENAL CLEARANCE DECREASED [None]
  - GLOMERULAR FILTRATION RATE ABNORMAL [None]
  - HAEMOGLOBIN DECREASED [None]
  - PROTEINURIA [None]
